FAERS Safety Report 13672694 (Version 2)
Quarter: 2017Q3

REPORT INFORMATION
  Report Type: Spontaneous
  Country: US (occurrence: US)
  Receive Date: 20170621
  Receipt Date: 20170710
  Transmission Date: 20171127
  Serious: Yes (Other)
  Sender: FDA-Public Use
  Company Number: US-009507513-1706USA005481

PATIENT
  Age: 86 Year

DRUGS (2)
  1. SINEMET [Suspect]
     Active Substance: CARBIDOPA\LEVODOPA
     Indication: PARKINSON^S DISEASE
     Dosage: STRENGTH REPORTED AS 50/200 (UNIT UNKNOWN), 100 MG, TID
     Route: 048
     Dates: start: 2017
  2. AMANTADINE. [Suspect]
     Active Substance: AMANTADINE HYDROCHLORIDE
     Dosage: 100 MG, BID

REACTIONS (5)
  - Tremor [Unknown]
  - Toxicity to various agents [Unknown]
  - Seizure [Unknown]
  - Hallucination [Unknown]
  - Agitation [Unknown]

NARRATIVE: CASE EVENT DATE: 2017
